FAERS Safety Report 11156844 (Version 3)
Quarter: 2015Q3

REPORT INFORMATION
  Report Type: Report from Study
  Country: DO (occurrence: DO)
  Receive Date: 20150602
  Receipt Date: 20150803
  Transmission Date: 20151125
  Serious: Yes (Hospitalization)
  Sender: FDA-Public Use
  Company Number: PHHY2015DO065882

PATIENT
  Age: 12 Year
  Sex: Female
  Weight: 47.17 kg

DRUGS (2)
  1. FOLIC ACID. [Concomitant]
     Active Substance: FOLIC ACID
     Indication: PRODUCT USED FOR UNKNOWN INDICATION
     Dosage: 5 MG, QD
     Route: 048
  2. EXJADE [Suspect]
     Active Substance: DEFERASIROX
     Indication: SICKLE CELL ANAEMIA
     Dosage: 500 MG (10 MG/KG), QD
     Route: 048

REACTIONS (4)
  - Headache [Recovered/Resolved]
  - Hypoaesthesia [Recovered/Resolved]
  - Nausea [Recovered/Resolved]
  - Abdominal pain [Unknown]

NARRATIVE: CASE EVENT DATE: 20150525
